FAERS Safety Report 4867355-5 (Version None)
Quarter: 2005Q4

REPORT INFORMATION
  Report Type: 
  Country: None (occurrence: None)
  Receive Date: 20051222
  Receipt Date: 20051209
  Transmission Date: 20060501
  Serious: Yes (Other)
  Sender: FDA-Public Use
  Company Number: 2005167587

PATIENT
  Sex: Male

DRUGS (1)
  1. VIAGRA [Suspect]
     Indication: ILL-DEFINED DISORDER
     Dosage: ORAL
     Route: 048
     Dates: start: 20051208

REACTIONS (4)
  - ERECTION INCREASED [None]
  - OVERDOSE [None]
  - PENILE HAEMORRHAGE [None]
  - VICTIM OF ABUSE [None]
